FAERS Safety Report 10371633 (Version 6)
Quarter: 2014Q4

REPORT INFORMATION
  Report Type: Report from Study
  Country: GB (occurrence: GB)
  Receive Date: 20140808
  Receipt Date: 20141106
  Transmission Date: 20150528
  Serious: Yes (Hospitalization, Other)
  Sender: FDA-Public Use
  Company Number: GB-VERTEX PHARMACEUTICALS (CANADA)-2014-003359

PATIENT
  Age: 41 Year
  Sex: Male
  Weight: 75 kg

DRUGS (26)
  1. AZITHROMYCIN [Concomitant]
     Active Substance: AZITHROMYCIN ANHYDROUS
     Indication: CYSTIC FIBROSIS LUNG
     Dosage: 500 MG, TIW
     Route: 048
     Dates: start: 1999
  2. DEOXYRIBONUCLEASE HUMAN [Concomitant]
     Indication: CYSTIC FIBROSIS LUNG
     Dosage: 2.5 MG, QD
     Route: 055
     Dates: start: 1995
  3. VX-809 FDC [Suspect]
     Active Substance: IVACAFTOR
     Indication: CYSTIC FIBROSIS
     Dosage: 400 MG, Q12H
     Route: 048
     Dates: start: 20140416, end: 20140804
  4. VX-809 FDC [Suspect]
     Active Substance: IVACAFTOR
     Indication: CYSTIC FIBROSIS
     Dosage: 400 MG, Q12H
     Route: 048
     Dates: start: 20140221, end: 20140416
  5. NOVORAPID [Concomitant]
     Active Substance: INSULIN ASPART
     Indication: CYSTIC FIBROSIS RELATED DIABETES
     Dosage: 2 IU, QD
     Route: 058
     Dates: start: 201212
  6. SALBUTAMOL [Concomitant]
     Active Substance: ALBUTEROL
     Dosage: 25 MG, BID
     Route: 055
     Dates: start: 1992
  7. CETIRIZINE [Concomitant]
     Active Substance: CETIRIZINE HYDROCHLORIDE
     Indication: PYREXIA
  8. CEFOMYCIN [Concomitant]
     Indication: PSEUDOMONAS TEST POSITIVE
     Dosage: 2 MG, BID
     Route: 055
     Dates: start: 20140416, end: 20140515
  9. VX-770 FDC [Suspect]
     Active Substance: IVACAFTOR
     Indication: CYSTIC FIBROSIS
     Dosage: 250 MG, Q12H
     Route: 048
     Dates: start: 20140221, end: 20140416
  10. DOXYCYCLINE. [Concomitant]
     Active Substance: DOXYCYCLINE
     Indication: DYSPNOEA
  11. SALBUTAMOL [Concomitant]
     Active Substance: ALBUTEROL
     Indication: WHEEZING
     Dosage: 200 ?G, BID
     Route: 055
     Dates: start: 1992
  12. VITAMIN K [Concomitant]
     Active Substance: PHYTONADIONE
     Indication: PANCREATIC INSUFFICIENCY
     Dosage: 10 MG, QD
     Route: 048
     Dates: start: 2004
  13. TOBRAMYCIN. [Concomitant]
     Active Substance: TOBRAMYCIN
     Indication: PSEUDOMONAS TEST POSITIVE
     Dosage: 300 MG, BID
     Route: 055
     Dates: start: 20140516, end: 20140613
  14. TOBRAMYCIN. [Concomitant]
     Active Substance: TOBRAMYCIN
     Dosage: 300 MG, BID
     Route: 055
     Dates: start: 20140713
  15. NUTRIZYM [Concomitant]
     Indication: INFECTIVE PULMONARY EXACERBATION OF CYSTIC FIBROSIS
     Dosage: 25 DF, QD
     Route: 048
     Dates: start: 1978
  16. OMEPRAZOLE. [Concomitant]
     Active Substance: OMEPRAZOLE
     Indication: GASTROOESOPHAGEAL REFLUX DISEASE
     Dosage: 20 MG, BID
     Route: 048
     Dates: start: 20140416
  17. COLOMYCIN [Concomitant]
     Active Substance: COLISTIN
     Indication: PSEUDOMONAS TEST POSITIVE
     Dosage: 2 UNK, BID
     Route: 055
     Dates: start: 20140614, end: 20140712
  18. SERETIDE [Concomitant]
     Active Substance: FLUTICASONE FUROATE\SALMETEROL XINAFOATE
     Indication: WHEEZING
     Dosage: 250 MG, BID
     Route: 055
     Dates: start: 2004
  19. CIPROFLOXACIN. [Concomitant]
     Active Substance: CIPROFLOXACIN
     Indication: DYSPNOEA
     Dosage: 750 MG, BID
     Route: 048
     Dates: start: 20140428, end: 20140513
  20. CALCIUM WITH D3 [Concomitant]
     Indication: OSTEOPENIA
     Dosage: 2 DF, QD
     Route: 048
     Dates: start: 2008
  21. DOXYCYCLINE. [Concomitant]
     Active Substance: DOXYCYCLINE
     Indication: PRODUCTIVE COUGH
     Dosage: UNK, BID
     Route: 048
     Dates: start: 20140430, end: 20140513
  22. CETIRIZINE [Concomitant]
     Active Substance: CETIRIZINE HYDROCHLORIDE
     Indication: PRODUCTIVE COUGH
     Dosage: 10 MG, QD
     Route: 048
     Dates: start: 20140611, end: 20140611
  23. VX-770 FDC [Suspect]
     Active Substance: IVACAFTOR
     Indication: CYSTIC FIBROSIS
     Dosage: 250 MG, Q12H
     Route: 048
     Dates: start: 20140416, end: 20140804
  24. CIPROFLOXACIN. [Concomitant]
     Active Substance: CIPROFLOXACIN
     Indication: PRODUCTIVE COUGH
     Dosage: 750 MG, BID
     Route: 048
     Dates: start: 20140603, end: 20140616
  25. VITAMIN A AND D [Concomitant]
     Active Substance: LANOLIN\PETROLATUM
     Indication: PANCREATIC INSUFFICIENCY
     Dosage: 2 DF, QD
     Route: 048
     Dates: start: 1991
  26. VITAMIN E [Concomitant]
     Active Substance: .ALPHA.-TOCOPHEROL
     Indication: PANCREATIC INSUFFICIENCY
     Dosage: 400 IU, QD
     Route: 048
     Dates: start: 1991

REACTIONS (1)
  - Pulmonary function test decreased [Recovered/Resolved]

NARRATIVE: CASE EVENT DATE: 20140801
